FAERS Safety Report 4657529-0 (Version None)
Quarter: 2005Q2

REPORT INFORMATION
  Report Type: 
  Country: None (occurrence: None)
  Receive Date: 20050405
  Receipt Date: 20041227
  Transmission Date: 20051028
  Serious: Yes (Hospitalization, Other)
  Sender: FDA-Public Use
  Company Number: 2004077391

PATIENT
  Sex: Female

DRUGS (2)
  1. GEODON [Suspect]
     Indication: BIPOLAR DISORDER
     Dosage: 40 MG(20 MG,2 IN 1 D),ORAL
     Route: 048
     Dates: start: 20030802
  2. ETHANOL (ETHANOL) [Concomitant]

REACTIONS (1)
  - SYNCOPE [None]
